FAERS Safety Report 19589646 (Version 2)
Quarter: 2021Q3

REPORT INFORMATION
  Report Type: Report from Study
  Country: TR (occurrence: TR)
  Receive Date: 20210721
  Receipt Date: 20210812
  Transmission Date: 20211014
  Serious: Yes (Death)
  Sender: FDA-Public Use
  Company Number: TR-ROCHE-2873342

PATIENT
  Age: 67 Year
  Sex: Male
  Weight: 80 kg

DRUGS (6)
  1. CARDURA [Concomitant]
     Active Substance: DOXAZOSIN MESYLATE
     Indication: HYPERTENSION
     Route: 048
     Dates: start: 2009
  2. ATEZOLIZUMAB. [Suspect]
     Active Substance: ATEZOLIZUMAB
     Indication: NON-SMALL CELL LUNG CANCER
     Dosage: DATE OF MOST RECENT DOSE OF STUDY DRUG PRIOR TO ADVERSE EVENT 22?APR?2021 1200 MG
     Route: 041
     Dates: start: 20210126
  3. TIRAGOLUMAB. [Suspect]
     Active Substance: TIRAGOLUMAB
     Indication: NON-SMALL CELL LUNG CANCER
     Dosage: DATE OF MOST RECENT DOSE (600 MG) OF STUDY DRUG PRIOR TO ADVERSE EVENT 22/APR/2021
     Route: 042
     Dates: start: 20210126
  4. FEXOFEN [Concomitant]
     Indication: RASH
     Route: 048
     Dates: start: 20210422
  5. VASOXEN [Concomitant]
     Active Substance: NEBIVOLOL HYDROCHLORIDE
     Indication: HYPERTENSION
     Route: 048
     Dates: start: 2009
  6. DERMABEL (TURKEY) [Concomitant]
     Indication: RASH
     Route: 061
     Dates: start: 20210422

REACTIONS (1)
  - Death [Fatal]

NARRATIVE: CASE EVENT DATE: 20210716
